FAERS Safety Report 14032231 (Version 1)
Quarter: 2017Q4

REPORT INFORMATION
  Report Type: Spontaneous
  Country: US (occurrence: US)
  Receive Date: 20171003
  Receipt Date: 20171003
  Transmission Date: 20180321
  Serious: No
  Sender: FDA-Public Use
  Company Number: US-ELI_LILLY_AND_COMPANY-US201709011139

PATIENT
  Sex: Female

DRUGS (2)
  1. HUMALOG [Suspect]
     Active Substance: INSULIN LISPRO
     Indication: TYPE 2 DIABETES MELLITUS
     Dosage: 10 U, TID
     Route: 058
     Dates: start: 201705
  2. HUMALOG [Suspect]
     Active Substance: INSULIN LISPRO
     Dosage: 10 U, TID
     Route: 058
     Dates: start: 201705

REACTIONS (4)
  - Blood glucose decreased [Unknown]
  - Incorrect drug administration duration [Unknown]
  - Hunger [Unknown]
  - Visual impairment [Unknown]
